FAERS Safety Report 9771371 (Version 2)
Quarter: 2013Q4

REPORT INFORMATION
  Report Type: Spontaneous
  Country: DK (occurrence: DK)
  Receive Date: 20131218
  Receipt Date: 20131218
  Transmission Date: 20140711
  Serious: Yes (Disabling)
  Sender: FDA-Public Use
  Company Number: DK-GE HEALTHCARE MEDICAL DIAGNOSTICS-OSCN-NO-0611S-0344

PATIENT
  Age: 59 Year
  Sex: Male
  Weight: 60 kg

DRUGS (10)
  1. OMNISCAN [Suspect]
     Indication: TRANSPLANT EVALUATION
     Route: 042
     Dates: start: 20050816, end: 20050816
  2. MULTIHANCE (GADOBENATE) [Suspect]
     Indication: PRODUCT USED FOR UNKNOWN INDICATION
     Dates: start: 20030423, end: 20030423
  3. MULTIHANCE (GADOBENATE) [Suspect]
     Dates: start: 20030429, end: 20030429
  4. MULTIHANCE (GADOBENATE) [Suspect]
     Dates: start: 20040310, end: 20040310
  5. MULTIHANCE (GADOBENATE) [Suspect]
     Dates: start: 20040316, end: 20040316
  6. GABAPENTIN [Concomitant]
  7. PREDNISOLONE [Concomitant]
  8. AMITRIPTYLINE (SAROTEN) [Concomitant]
  9. TRAMADOL (TRADOLAN) [Concomitant]
  10. CICLOSPORIN [Concomitant]

REACTIONS (1)
  - Nephrogenic systemic fibrosis [Not Recovered/Not Resolved]
